FAERS Safety Report 5054818-5 (Version None)
Quarter: 2006Q3

REPORT INFORMATION
  Report Type: 
  Country: None (occurrence: None)
  Receive Date: 20060719
  Receipt Date: 20060711
  Transmission Date: 20061208
  Serious: Yes (Other)
  Sender: FDA-Public Use
  Company Number: JP-AVENTIS-200617174GDDC

PATIENT
  Age: 31 Year
  Sex: Female
  Weight: 90.35 kg

DRUGS (3)
  1. LEVAQUIN [Suspect]
     Indication: ACUTE SINUSITIS
     Route: 048
     Dates: start: 20060515, end: 20060615
  2. ALLEGRA [Suspect]
     Indication: SEASONAL ALLERGY
     Route: 048
  3. FLONASE [Concomitant]

REACTIONS (1)
  - NEUROPATHY PERIPHERAL [None]
